FAERS Safety Report 7978365-3 (Version None)
Quarter: 2011Q4

REPORT INFORMATION
  Report Type: 
  Country: None (occurrence: None)
  Receive Date: 20111214
  Receipt Date: 20111208
  Transmission Date: 20120403
  Serious: Yes (Other)
  Sender: FDA-Public Use
  Company Number: BR-PFIZER INC-2011302348

PATIENT
  Age: 54 Year
  Sex: Male
  Weight: 99 kg

DRUGS (11)
  1. SUTENT [Suspect]
     Dosage: 50 MG, CYCLIC, FOR 28 DAYS
     Route: 048
     Dates: start: 20110218, end: 20110317
  2. ALLOPURINOL [Concomitant]
     Indication: HYPERURICAEMIA
     Dosage: 100 MG, 1X/DAY
     Dates: start: 20110128, end: 20110228
  3. VALSARTAN [Concomitant]
     Indication: HYPERTENSION
     Dosage: 320 MG, 1X/DAY
     Route: 048
  4. ALBENDAZOLE [Concomitant]
     Indication: INFECTION PARASITIC
     Dosage: 200 MG, 1X/DAY
     Route: 048
     Dates: start: 20101224, end: 20101226
  5. SUTENT [Suspect]
     Indication: RENAL CANCER
     Dosage: 50 MG, CYCLIC, FOR 28 DAYS
     Route: 048
     Dates: start: 20101224, end: 20110121
  6. VILDAGLIPTIN [Concomitant]
     Indication: DIABETES MELLITUS
     Dosage: 50 MG, 2X/DAY, EVERY 12 HOURS
     Route: 048
  7. INDAPAMIDE [Concomitant]
     Indication: DIURETIC THERAPY
     Dosage: 1.5 MG, 1X/DAY
     Route: 048
  8. GLICLAZIDE [Concomitant]
     Indication: HYPERGLYCAEMIA
     Dosage: 60 MG, 1X/DAY, IN THE MORNING
     Route: 048
  9. ALBENDAZOLE [Concomitant]
     Dosage: 200 MG, 1X/DAY
     Route: 048
     Dates: start: 20110401, end: 20110403
  10. ALLOPURINOL [Concomitant]
     Dosage: 100 MG, 1X/DAY
     Route: 048
     Dates: start: 20110318, end: 20110501
  11. ACETAMINOPHEN AND CODEINE PHOSPHATE [Concomitant]
     Indication: ANALGESIC THERAPY
     Dosage: UNK
     Route: 048
     Dates: start: 20110128, end: 20110501

REACTIONS (5)
  - VISION BLURRED [None]
  - NAUSEA [None]
  - MUCOSAL INFLAMMATION [None]
  - ASTHENIA [None]
  - ALOPECIA [None]
